FAERS Safety Report 6769402-2 (Version None)
Quarter: 2010Q2

REPORT INFORMATION
  Report Type: 
  Country: None (occurrence: None)
  Receive Date: 20100615
  Receipt Date: 20100610
  Transmission Date: 20101027
  Serious: Yes (Death, Other)
  Sender: FDA-Public Use
  Company Number: PHHY2010SE37557

PATIENT
  Sex: Male

DRUGS (4)
  1. ZOMETA [Suspect]
     Indication: PROSTATE CANCER
     Dosage: 4MG/5ML
     Dates: start: 20090625, end: 20090625
  2. OMEPRAZOLE [Concomitant]
  3. ACETAMINOPHEN [Concomitant]
     Dosage: 500 MG
     Route: 048
  4. METADON [Concomitant]

REACTIONS (2)
  - DEATH [None]
  - OSTEONECROSIS [None]
